FAERS Safety Report 5121033-6 (Version None)
Quarter: 2006Q4

REPORT INFORMATION
  Report Type: 
  Country: None (occurrence: None)
  Receive Date: 20061002
  Receipt Date: 20060911
  Transmission Date: 20070319
  Serious: Yes (Other)
  Sender: FDA-Public Use
  Company Number: DK200608003439

PATIENT
  Age: 83 Year
  Sex: Female
  Weight: 69 kg

DRUGS (10)
  1. TERIPARATIDE [Suspect]
     Indication: OSTEOPOROSIS
     Dosage: 20 UG, DAILY (I/D), SUBCUTANEOUS
     Route: 058
     Dates: start: 20050225
  2. FORTEO PEN (250MGC/ML) [Concomitant]
  3. POTASSIUM CHLORIDE [Concomitant]
  4. MULTITABS     (FERROUS FUMARATE, MINERALS NOS, VITAMINS NOS) [Concomitant]
  5. PRIMEPRAN    (METOCLOPRAMIDE) TABLET [Concomitant]
  6. PREDNISOLON              (PREDNISOLONE) TABLET [Concomitant]
  7. CALCIUM W/VITAMIN D NOS                   (CALCIUM WITH VITAMIN D NOS) [Concomitant]
  8. AMLODIPINE [Concomitant]
  9. PANODIL (PARACETAMOL) TABLET [Concomitant]
  10. LAKTULOSE (LACTULOSE) SOLUTION [Concomitant]

REACTIONS (9)
  - ASTHMA [None]
  - BLOOD PRESSURE ABNORMAL [None]
  - CONSTIPATION [None]
  - FALL [None]
  - FEMUR FRACTURE [None]
  - HIP FRACTURE [None]
  - NAUSEA [None]
  - PAIN [None]
  - URINARY RETENTION [None]
